FAERS Safety Report 13512480 (Version 1)
Quarter: 2017Q2

REPORT INFORMATION
  Report Type: Spontaneous
  Country: US (occurrence: US)
  Receive Date: 20170504
  Receipt Date: 20170504
  Transmission Date: 20170830
  Serious: Yes (Other)
  Sender: FDA-Public Use
  Company Number: US-AMNEAL PHARMACEUTICALS-2017AMN00556

PATIENT
  Age: 63 Year
  Sex: Male
  Weight: 117.91 kg

DRUGS (5)
  1. BUMEX [Concomitant]
     Active Substance: BUMETANIDE
     Dosage: 1 MG, 1X/DAY
     Route: 048
     Dates: start: 201703, end: 20170424
  2. SPIRONOLACTONE. [Suspect]
     Active Substance: SPIRONOLACTONE
     Dosage: 25 MG, 2X/DAY
     Route: 048
     Dates: start: 2014
  3. LASIX [Suspect]
     Active Substance: FUROSEMIDE
     Dosage: UNK
     Dates: start: 201702
  4. UNSPECIFIED HEART MEDICATIONS [Concomitant]
     Active Substance: UNSPECIFIED INGREDIENT
     Indication: CARDIAC DISORDER
     Dosage: UNK
  5. LASIX [Suspect]
     Active Substance: FUROSEMIDE
     Indication: CARDIAC FAILURE CONGESTIVE
     Dosage: 20 MG, 1X/DAY
     Route: 048
     Dates: start: 20170131, end: 20170201

REACTIONS (8)
  - Feeling abnormal [Recovered/Resolved]
  - Gait disturbance [Not Recovered/Not Resolved]
  - Bladder spasm [Not Recovered/Not Resolved]
  - Dyspnoea [Recovered/Resolved]
  - Fluid imbalance [Not Recovered/Not Resolved]
  - Product use issue [Unknown]
  - Arthralgia [Not Recovered/Not Resolved]
  - Urogenital haemorrhage [Recovered/Resolved]

NARRATIVE: CASE EVENT DATE: 201702
